FAERS Safety Report 5043733-9 (Version None)
Quarter: 2006Q2

REPORT INFORMATION
  Report Type: 
  Country: None (occurrence: None)
  Receive Date: 20060629
  Receipt Date: 20060620
  Transmission Date: 20061013
  Serious: Yes (Other)
  Sender: FDA-Public Use
  Company Number: 2006077913

PATIENT
  Age: 60 Year
  Sex: Female

DRUGS (3)
  1. LIPITOR [Suspect]
     Indication: BLOOD CHOLESTEROL INCREASED
  2. LEXAPRO [Suspect]
     Indication: ANXIETY
     Dosage: 5 MG (5 MG, 1 IN 1 D) ORAL
     Route: 048
     Dates: start: 20060516, end: 20060530
  3. STARLIX [Suspect]
     Indication: DIABETES MELLITUS

REACTIONS (5)
  - CRANIAL NERVE PARALYSIS [None]
  - DIABETES MELLITUS [None]
  - DRUG INTERACTION [None]
  - MITOCHONDRIAL MYOPATHY [None]
  - TINNITUS [None]
